FAERS Safety Report 25814061 (Version 2)
Quarter: 2025Q4

REPORT INFORMATION
  Report Type: Spontaneous
  Country: US (occurrence: US)
  Receive Date: 20250917
  Receipt Date: 20251103
  Transmission Date: 20260118
  Serious: Yes (Other)
  Sender: NOVARTIS
  Company Number: US-002147023-NVSC2025US141418

PATIENT
  Age: 6 Year
  Sex: Male
  Weight: 29.5 kg

DRUGS (4)
  1. MEKINIST [Suspect]
     Active Substance: TRAMETINIB DIMETHYL SULFOXIDE
     Indication: Brain neoplasm benign
     Dosage: 1 MG, QD(MONDAY-FRIDAY)
     Route: 048
     Dates: start: 20250406, end: 20250730
  2. MEKINIST [Suspect]
     Active Substance: TRAMETINIB DIMETHYL SULFOXIDE
     Dosage: 1 MG, QD(MONDAY,WEDNESDAY,FRIDAY)
     Route: 048
     Dates: start: 20250821
  3. MEKINIST [Suspect]
     Active Substance: TRAMETINIB DIMETHYL SULFOXIDE
     Dosage: UNK, ALTERNATING DAYS (TUESDAY AND THURSDAY)
     Route: 048
     Dates: start: 20250406, end: 20250730
  4. OLANZAPINE [Concomitant]
     Active Substance: OLANZAPINE
     Indication: Anxiety
     Dosage: 2.5 MG, QHS(PRN)
     Route: 048
     Dates: start: 20250528

REACTIONS (5)
  - Cardiac dysfunction [Recovered/Resolved]
  - Bullous impetigo [Recovered/Resolved]
  - Rash [Recovered/Resolved]
  - Rash pruritic [Recovered/Resolved]
  - Blister [Recovered/Resolved]

NARRATIVE: CASE EVENT DATE: 20250730
